FAERS Safety Report 21009701 (Version 1)
Quarter: 2022Q2

REPORT INFORMATION
  Report Type: Spontaneous
  Country: US (occurrence: US)
  Receive Date: 20220627
  Receipt Date: 20220627
  Transmission Date: 20220721
  Serious: No
  Sender: FDA-Public Use
  Company Number: US-PFIZER INC-202200893482

PATIENT
  Age: 58 Year
  Sex: Female

DRUGS (1)
  1. IBRANCE [Suspect]
     Active Substance: PALBOCICLIB
     Dosage: 125 MG, CYCLIC (TAKE 1 CAPSULE DAILY WITH BREAKFAST FOR 21 DAYS ON AND OFF 7 DAYS)
     Route: 048
     Dates: start: 20220611

REACTIONS (2)
  - Pain in extremity [Recovering/Resolving]
  - Hypokinesia [Not Recovered/Not Resolved]

NARRATIVE: CASE EVENT DATE: 20220612
